FAERS Safety Report 8377424-3 (Version None)
Quarter: 2012Q2

REPORT INFORMATION
  Report Type: 
  Country: None (occurrence: None)
  Receive Date: 20120522
  Receipt Date: 20110329
  Transmission Date: 20120825
  Serious: No
  Sender: FDA-Public Use
  Company Number: US-ASTRAZENECA-2011SE05563

PATIENT
  Age: 63 Year
  Sex: Female

DRUGS (8)
  1. LISINOPRIL [Concomitant]
     Indication: HYPERTENSION
     Dosage: UNKOWN
     Route: 048
  2. LYRICA [Concomitant]
     Indication: SPINAL COLUMN STENOSIS
     Dosage: UNKOWN
  3. PRILOSEC [Suspect]
     Indication: DYSPEPSIA
     Dosage: UNKOWN
     Route: 048
     Dates: start: 20010701, end: 20040701
  4. ATENOLOL [Concomitant]
     Indication: HYPERTENSION
     Dosage: UNKOWN
     Route: 048
  5. AMLODIPINE BESYLATE [Concomitant]
     Indication: HYPERTENSION
     Dosage: UNKOWN
  6. LIPITOR [Concomitant]
     Indication: BLOOD CHOLESTEROL INCREASED
     Dosage: UNKOWN
  7. CELEBREX [Concomitant]
     Indication: SPINAL COLUMN STENOSIS
     Dosage: UNKOWN
  8. PRILOSEC OTC [Suspect]
     Indication: GASTROOESOPHAGEAL REFLUX DISEASE
     Dosage: UNKNOWN
     Route: 048
     Dates: start: 20040801, end: 20101201

REACTIONS (4)
  - GAIT DISTURBANCE [None]
  - PAIN IN EXTREMITY [None]
  - BACK PAIN [None]
  - HYPOAESTHESIA [None]
